FAERS Safety Report 24628752 (Version 1)
Quarter: 2024Q4

REPORT INFORMATION
  Report Type: Spontaneous
  Country: FI (occurrence: FI)
  Receive Date: 20241117
  Receipt Date: 20241117
  Transmission Date: 20250114
  Serious: Yes (Disabling)
  Sender: ORGANON
  Company Number: None

PATIENT
  Age: 28 Year
  Sex: Female

DRUGS (1)
  1. ELOCON [Suspect]
     Active Substance: MOMETASONE FUROATE
     Indication: Dermatitis atopic
     Dosage: ONCE A DAY FOR 2 WEEKS, AFTER THAT 2 WEEKS BREAK AND AGAIN 2 WEEKS TREATMENT AND SO ON UNTIL ECZEMA
     Route: 003
     Dates: start: 2018, end: 2023

REACTIONS (5)
  - Dermatitis atopic [Not Recovered/Not Resolved]
  - Impaired work ability [Not Recovered/Not Resolved]
  - Withdrawal syndrome [Not Recovered/Not Resolved]
  - Skin burning sensation [Not Recovered/Not Resolved]
  - Performance status decreased [Not Recovered/Not Resolved]

NARRATIVE: CASE EVENT DATE: 20180101
